FAERS Safety Report 5706291-9 (Version None)
Quarter: 2008Q2

REPORT INFORMATION
  Report Type: 
  Country: None (occurrence: None)
  Receive Date: 20080411
  Receipt Date: 20080331
  Transmission Date: 20081010
  Serious: Yes (Hospitalization)
  Sender: FDA-Public Use
  Company Number: 2008S1005342

PATIENT
  Sex: Female

DRUGS (1)
  1. MELOXICAM [Suspect]
     Dates: start: 20071101

REACTIONS (3)
  - HAEMORRHAGE [None]
  - IMPAIRED WORK ABILITY [None]
  - ULCER [None]
